FAERS Safety Report 9354117 (Version 1)
Quarter: 2013Q2

REPORT INFORMATION
  Report Type: Spontaneous
  Country: NL (occurrence: NL)
  Receive Date: 20130618
  Receipt Date: 20130618
  Transmission Date: 20140414
  Serious: Yes (Hospitalization)
  Sender: FDA-Public Use
  Company Number: NL-TEVA-412133ISR

PATIENT
  Age: 59 Year
  Sex: Male

DRUGS (2)
  1. TAMOXIFEN TABLET 20MG [Suspect]
     Indication: BREAST CANCER
     Dosage: 20 MILLIGRAM DAILY;
     Route: 048
     Dates: start: 20110121, end: 20130608
  2. AMOXICILLINE [Interacting]
     Indication: GINGIVITIS
     Dosage: 3 DOSAGE FORMS DAILY;
     Route: 048
     Dates: start: 20130607

REACTIONS (2)
  - Drug interaction [Recovering/Resolving]
  - Chest pain [Recovering/Resolving]
